FAERS Safety Report 8593892-6 (Version None)
Quarter: 2012Q3

REPORT INFORMATION
  Report Type: 
  Country: None (occurrence: None)
  Receive Date: 20120814
  Receipt Date: 20120808
  Transmission Date: 20120928
  Serious: Yes (Hospitalization, Other)
  Sender: FDA-Public Use
  Company Number: JP-VERTEX PHARMACEUTICALS INC.-AE-2012-012036

PATIENT
  Sex: Female

DRUGS (6)
  1. CONIEL [Concomitant]
     Route: 048
     Dates: start: 20100914
  2. RISEDRONATE SODIUM [Concomitant]
     Route: 048
     Dates: start: 20100914
  3. TELAVIC (TELAPREVIR) [Suspect]
     Indication: HEPATITIS C
     Route: 048
     Dates: start: 20120730, end: 20120731
  4. REBETOL [Concomitant]
     Route: 048
     Dates: start: 20120730, end: 20120731
  5. PEG-INTRON [Concomitant]
     Route: 058
     Dates: start: 20120730, end: 20120731
  6. RABEPRAZOLE SODIUM [Concomitant]
     Route: 048
     Dates: start: 20100914

REACTIONS (1)
  - BLOOD PRESSURE DECREASED [None]
